FAERS Safety Report 19478141 (Version 1)
Quarter: 2021Q2

REPORT INFORMATION
  Report Type: Spontaneous
  Country: JP (occurrence: JP)
  Receive Date: 20210630
  Receipt Date: 20210630
  Transmission Date: 20210717
  Serious: Yes (Hospitalization)
  Sender: FDA-Public Use
  Company Number: JP-TAKEDA-2021TEU005886

PATIENT
  Age: 3 Decade
  Sex: Female

DRUGS (5)
  1. MELATONIN [Concomitant]
     Active Substance: MELATONIN
     Indication: AUTONOMIC NERVOUS SYSTEM IMBALANCE
     Dosage: 120 MILLIGRAM
     Route: 048
  2. QUETIAPINE FUMARATE. [Concomitant]
     Active Substance: QUETIAPINE FUMARATE
     Indication: AUTONOMIC NERVOUS SYSTEM IMBALANCE
     Dosage: 1450 MILLIGRAM
     Route: 048
  3. METLIGINE TABLETS 2 MG (API ONLY) [Suspect]
     Active Substance: MIDODRINE HYDROCHLORIDE
     Indication: AUTONOMIC NERVOUS SYSTEM IMBALANCE
     Dosage: 112 MILLIGRAM
     Route: 048
  4. SERTRALINE [Concomitant]
     Active Substance: SERTRALINE HYDROCHLORIDE
     Indication: AUTONOMIC NERVOUS SYSTEM IMBALANCE
     Dosage: 1400 MILLIGRAM
     Route: 048
  5. ARIPIPRAZOLE. [Concomitant]
     Active Substance: ARIPIPRAZOLE
     Indication: AUTONOMIC NERVOUS SYSTEM IMBALANCE
     Dosage: 56 MILLIGRAM
     Route: 048

REACTIONS (2)
  - Overdose [Recovering/Resolving]
  - Toxicity to various agents [Recovering/Resolving]
